FAERS Safety Report 23532231 (Version 2)
Quarter: 2024Q1

REPORT INFORMATION
  Report Type: Spontaneous
  Country: TW (occurrence: TW)
  Receive Date: 20240216
  Receipt Date: 20240223
  Transmission Date: 20240410
  Serious: Yes (Death, Other)
  Sender: FDA-Public Use
  Company Number: TW-UCBSA-2024007780

PATIENT
  Age: 82 Year
  Sex: Female
  Weight: 65 kg

DRUGS (27)
  1. KEPPRA [Suspect]
     Active Substance: LEVETIRACETAM
     Indication: Seizure
     Dosage: 500 MILLIGRAM, 2X/DAY (BID)
     Route: 048
     Dates: start: 20231230, end: 20240126
  2. DIFLUCAN [Suspect]
     Active Substance: FLUCONAZOLE
     Indication: Infection
     Dosage: 200 MILLIGRAM, ONCE DAILY (QD)/ 100MG/50ML
     Route: 042
     Dates: start: 20240117, end: 20240123
  3. FAMOTIDINE [Suspect]
     Active Substance: FAMOTIDINE
     Indication: Gastrointestinal disorder prophylaxis
     Dosage: 20 MILLIGRAM, 2X/DAY (BID)
     Route: 048
     Dates: start: 20240123, end: 20240126
  4. FAMOTIDINE [Suspect]
     Active Substance: FAMOTIDINE
     Dosage: 20 MILLIGRAM, 2X/DAY (BID)
     Route: 048
     Dates: start: 20240129
  5. ISOSORBIDE MONONITRATE [Suspect]
     Active Substance: ISOSORBIDE MONONITRATE
     Indication: Cardiac failure
     Dosage: 20 MILLIGRAM, 2X/DAY (BID)
     Route: 048
     Dates: start: 20231222, end: 20240126
  6. HERBESSER [Suspect]
     Active Substance: DILTIAZEM HYDROCHLORIDE
     Indication: Hypertension
     Dosage: 30 MILLIGRAM, 2X/DAY (BID), AFTER MEAL
     Route: 048
     Dates: start: 20240119, end: 20240126
  7. CEFTRIAXONE [Suspect]
     Active Substance: CEFTRIAXONE\CEFTRIAXONE SODIUM
     Indication: Septic shock
     Dosage: 1 GRAM, 2X/DAY (BID)
     Dates: start: 20231229, end: 20240123
  8. SPIRONOLACTONE [Suspect]
     Active Substance: SPIRONOLACTONE
     Indication: Product used for unknown indication
     Dosage: 25 MILLIGRAM, 3X/DAY (TID) WITH MEAL
  9. ALLEGRA [Suspect]
     Active Substance: FEXOFENADINE HYDROCHLORIDE
     Indication: Product used for unknown indication
     Dosage: 60 MILLIGRAM, ONCE DAILY (QD) AFTER MEAL
  10. FLUCONAZOLE [Suspect]
     Active Substance: FLUCONAZOLE
     Indication: Infection
     Dosage: 1 DOSAGE FORM, ONCE DAILY (QD)
  11. PANTOPRAZOLE SODIUM [Suspect]
     Active Substance: PANTOPRAZOLE SODIUM
     Indication: Haematochezia
     Dosage: 1 DOSAGE FORM, ONCE DAILY (QD), 40 MG
     Route: 042
     Dates: start: 20231217, end: 20240123
  12. ROSIS [FUROSEMIDE] [Concomitant]
     Indication: Product used for unknown indication
  13. AMSULBER CYH [Concomitant]
     Indication: Product used for unknown indication
     Dosage: UNK
     Dates: start: 20231209, end: 20231212
  14. BENAMINE [Concomitant]
     Indication: Product used for unknown indication
  15. CEXITIN [Concomitant]
     Indication: Product used for unknown indication
     Dosage: UNK
     Dates: start: 20231212, end: 20231215
  16. CLARITHROMYCIN [Concomitant]
     Active Substance: CLARITHROMYCIN
     Indication: Product used for unknown indication
     Dosage: UNK
     Dates: start: 20231213, end: 20231220
  17. PIPERACILLIN SODIUM\TAZOBACTAM SODIUM [Concomitant]
     Active Substance: PIPERACILLIN SODIUM\TAZOBACTAM SODIUM
     Indication: Product used for unknown indication
     Dosage: UNK
     Dates: start: 20231215, end: 20231220
  18. EPINEPHRINE [Concomitant]
     Active Substance: EPINEPHRINE
     Indication: Product used for unknown indication
  19. CALCIUM CARBONATE [Concomitant]
     Active Substance: CALCIUM CARBONATE
     Indication: Product used for unknown indication
     Dosage: UNK
     Dates: start: 20240123, end: 20240126
  20. ATROPINE [Concomitant]
     Active Substance: ATROPINE\ATROPINE SULFATE
     Indication: Product used for unknown indication
  21. SODIUM BICARBONATE [Concomitant]
     Active Substance: SODIUM BICARBONATE
     Indication: Product used for unknown indication
     Dosage: UNK
  22. CLINDAMYCIN [Concomitant]
     Active Substance: CLINDAMYCIN
     Indication: Product used for unknown indication
     Dosage: UNK
     Dates: start: 20231218, end: 20240108
  23. LEVOFLOXACIN [Concomitant]
     Active Substance: LEVOFLOXACIN
     Indication: Product used for unknown indication
     Dosage: UNK
     Dates: start: 20240131, end: 20240203
  24. CEFEPIME [Concomitant]
     Active Substance: CEFEPIME HYDROCHLORIDE
     Indication: Product used for unknown indication
     Dosage: UNK
     Dates: start: 20231220, end: 20231229
  25. SULFASIL [Concomitant]
     Indication: Product used for unknown indication
     Dosage: UNK
  26. TATUMCEF [Concomitant]
     Indication: Product used for unknown indication
     Dosage: UNK
  27. DIANLIN [Concomitant]
     Indication: Product used for unknown indication
     Dosage: UNK

REACTIONS (16)
  - Septic shock [Fatal]
  - Toxic epidermal necrolysis [Unknown]
  - Skin lesion removal [Unknown]
  - Erythema [Unknown]
  - Pyrexia [Unknown]
  - Haematuria [Unknown]
  - Candida infection [Unknown]
  - COVID-19 [Unknown]
  - SARS-CoV-2 test positive [Unknown]
  - Rash erythematous [Unknown]
  - Blister [Not Recovered/Not Resolved]
  - Skin exfoliation [Unknown]
  - Skin wound [Unknown]
  - Skin injury [Unknown]
  - Mouth haemorrhage [Unknown]
  - Rash macular [Unknown]

NARRATIVE: CASE EVENT DATE: 20240112
